FAERS Safety Report 20992837 (Version 1)
Quarter: 2022Q2

REPORT INFORMATION
  Report Type: Spontaneous
  Country: US (occurrence: US)
  Receive Date: 20220622
  Receipt Date: 20220622
  Transmission Date: 20220721
  Serious: No
  Sender: FDA-Public Use
  Company Number: US-PFIZER INC-202200857787

PATIENT
  Age: 39 Year
  Sex: Female

DRUGS (3)
  1. PAXLOVID [Suspect]
     Active Substance: NIRMATRELVIR\RITONAVIR
     Indication: COVID-19 treatment
     Dosage: UNK
     Dates: start: 20220612, end: 20220616
  2. ADDERALL [Concomitant]
     Active Substance: AMPHETAMINE ASPARTATE\AMPHETAMINE SULFATE\DEXTROAMPHETAMINE SACCHARATE\DEXTROAMPHETAMINE SULFATE
     Dosage: UNK
     Dates: start: 20191231, end: 20220610
  3. WELLBUTRIN [Concomitant]
     Active Substance: BUPROPION HYDROCHLORIDE
     Dosage: UNK
     Dates: start: 20211231, end: 20220611

REACTIONS (2)
  - Disease recurrence [Not Recovered/Not Resolved]
  - COVID-19 [Not Recovered/Not Resolved]

NARRATIVE: CASE EVENT DATE: 20220619
